FAERS Safety Report 5393343-9 (Version None)
Quarter: 2007Q3

REPORT INFORMATION
  Report Type: 
  Country: None (occurrence: None)
  Receive Date: 20070720
  Receipt Date: 20070720
  Transmission Date: 20080115
  Serious: Yes (Hospitalization)
  Sender: FDA-Public Use
  Company Number: None

PATIENT
  Age: 77 Year
  Sex: Male
  Weight: 75.2971 kg

DRUGS (5)
  1. ALIMTA [Suspect]
     Indication: SQUAMOUS CELL CARCINOMA
     Dosage: 500 MG/M2 Q 3 WKS
     Dates: start: 20070606
  2. ERBITUX [Suspect]
     Indication: SQUAMOUS CELL CARCINOMA
     Dosage: 250 MG/M2 WKLY
     Dates: start: 20070530
  3. RADIATION [Suspect]
     Dosage: DAILY
     Dates: start: 20070627, end: 20070705
  4. FOLIC ACID [Concomitant]
  5. VIT B12 [Concomitant]

REACTIONS (2)
  - DYSPHAGIA [None]
  - FEBRILE NEUTROPENIA [None]
